FAERS Safety Report 4701523-8 (Version None)
Quarter: 2005Q2

REPORT INFORMATION
  Report Type: 
  Country: None (occurrence: None)
  Receive Date: 20050628
  Receipt Date: 20050622
  Transmission Date: 20051028
  Serious: Yes (Hospitalization)
  Sender: FDA-Public Use
  Company Number: FR-BRISTOL-MYERS SQUIBB COMPANY-13013362

PATIENT
  Age: 59 Year
  Sex: Male
  Weight: 79 kg

DRUGS (2)
  1. COAPROVEL TABS [Suspect]
     Route: 048
  2. AMLODIPINE BESYLATE [Suspect]

REACTIONS (2)
  - MALAISE [None]
  - ORTHOSTATIC HYPOTENSION [None]
